FAERS Safety Report 7168845-5 (Version None)
Quarter: 2010Q4

REPORT INFORMATION
  Report Type: 
  Country: None (occurrence: None)
  Receive Date: 20101216
  Receipt Date: 20100318
  Transmission Date: 20110411
  Serious: No
  Sender: FDA-Public Use
  Company Number: US-AMGEN-KDL385047

PATIENT

DRUGS (11)
  1. ENBREL [Suspect]
     Indication: PRODUCT USED FOR UNKNOWN INDICATION
     Dosage: 50 MG, QWK
     Route: 058
  2. LISINOPRIL [Concomitant]
     Dosage: 2.5 MG, UNK
  3. ISONIAZID [Concomitant]
     Dosage: 100 MG, UNK
  4. HYDROCHLOROTHIAZIDE [Concomitant]
     Dosage: 25 MG, UNK
  5. LEVOTHYROXINE SODIUM [Concomitant]
     Dosage: 25 A?G, UNK
  6. CELEXA [Concomitant]
     Dosage: 10 MG, UNK
  7. CALCIUM [Concomitant]
     Dosage: 600 MG, UNK
  8. MULTI-VITAMINS [Concomitant]
     Dosage: UNK UNK, UNK
  9. FISH OIL [Concomitant]
     Dosage: UNK UNK, UNK
  10. PYRIDOXINE HYDROCHLORIDE [Concomitant]
     Dosage: UNK UNK, UNK
  11. CYANOCOBALAMIN [Concomitant]

REACTIONS (6)
  - INJECTION SITE ERYTHEMA [None]
  - INJECTION SITE PRURITUS [None]
  - INJECTION SITE RASH [None]
  - INJECTION SITE REACTION [None]
  - NASOPHARYNGITIS [None]
  - SINUSITIS [None]
